FAERS Safety Report 5900662-3 (Version None)
Quarter: 2008Q3

REPORT INFORMATION
  Report Type: 
  Country: None (occurrence: None)
  Receive Date: 20080926
  Receipt Date: 20080916
  Transmission Date: 20090109
  Serious: Yes (Other)
  Sender: FDA-Public Use
  Company Number: JP-PFIZER INC-2008078874

PATIENT
  Age: 69 Year
  Sex: Male

DRUGS (2)
  1. GABAPEN [Suspect]
     Indication: NEURALGIA
     Dosage: DAILY DOSE:600MG
     Route: 048
     Dates: start: 20080828, end: 20080906
  2. DRUG, UNSPECIFIED [Concomitant]

REACTIONS (1)
  - BLOOD POTASSIUM INCREASED [None]
